FAERS Safety Report 9130305 (Version 1)
Quarter: 2013Q1

REPORT INFORMATION
  Report Type: Spontaneous
  Country: US (occurrence: US)
  Receive Date: 20130228
  Receipt Date: 20130228
  Transmission Date: 20140127
  Serious: Yes (Hospitalization)
  Sender: FDA-Public Use
  Company Number: US-ELI_LILLY_AND_COMPANY-US201302008274

PATIENT
  Age: 63 Year
  Sex: Female

DRUGS (24)
  1. FORTEO [Suspect]
     Indication: OSTEOPOROSIS
     Dosage: 20 UG, QD
     Dates: end: 20130218
  2. ALBUTEROL [Concomitant]
     Dosage: 2 PUFFS 4 TIMES, PRN
     Route: 055
  3. ABILIFY [Concomitant]
     Dosage: 5 MG, QD
  4. ASPIRIN E.C [Concomitant]
     Dosage: 325 MG, QD
  5. AZITHROMYCIN [Concomitant]
     Dosage: 500 MG, QD
  6. VITAMIN D [Concomitant]
     Dosage: 35000 U, QD
  7. CLONAZEPAM [Concomitant]
     Indication: ANXIETY
     Dosage: 0.5 MG BID, PRN
  8. CYMBALTA [Concomitant]
     Dosage: 60 MG, BID
  9. FENTANYL [Concomitant]
     Dosage: 100 UG, QOD
     Route: 062
  10. HYDROCHLOROTHIAZIDE [Concomitant]
     Dosage: 25 MG, QD
  11. LYSINE [Concomitant]
     Dosage: 1000 MG, QD
  12. METOPROLOL [Concomitant]
     Dosage: 12.5 MG, BID
     Route: 048
  13. SINGULAIR [Concomitant]
     Dosage: 10 MG, NIGHTLY
  14. MULTIVITAMIN [Concomitant]
  15. VITAMIN C + E CAPLETS [Concomitant]
     Dosage: UNK, QD
  16. OMEPRAZOLE [Concomitant]
     Dosage: 20 MG, BID
  17. OXYBUTYNIN [Concomitant]
     Indication: URINARY RETENTION
     Dosage: 5 MG, TID AS NEEDED
  18. OXYCODONE [Concomitant]
     Indication: PAIN
     Dosage: 15 MG, EVERY 6 HRS
  19. MIRALAX [Concomitant]
     Dosage: 17 G, QD
  20. POTASSIUM CITRATE [Concomitant]
     Dosage: 10 MEQ, TID
     Route: 048
  21. LYRICA [Concomitant]
     Dosage: 100 MG, BID
  22. SPIRIVA [Concomitant]
     Dosage: 18 UG, QD
     Route: 055
  23. TRAZODONE [Concomitant]
     Dosage: 100 MG, AT NIGHT
  24. GEODON [Concomitant]
     Dosage: 20 MG, AT BEDTIME

REACTIONS (3)
  - Atrial fibrillation [Unknown]
  - Dyspnoea [Unknown]
  - Pleurisy [Unknown]
